FAERS Safety Report 24444706 (Version 2)
Quarter: 2024Q4

REPORT INFORMATION
  Report Type: Report from Study
  Country: US (occurrence: US)
  Receive Date: 20241016
  Receipt Date: 20241017
  Transmission Date: 20250114
  Serious: No
  Sender: ROCHE
  Company Number: US-ROCHE-3002127

PATIENT
  Age: 56 Year
  Sex: Female
  Weight: 120.2 kg

DRUGS (3)
  1. RITUXAN [Suspect]
     Active Substance: RITUXIMAB
     Indication: Parophthalmia
     Dosage: 500 MG/50 ML
     Route: 041
     Dates: start: 2021
  2. RITUXAN [Suspect]
     Active Substance: RITUXIMAB
     Route: 042
  3. PREDNISONE [Concomitant]
     Active Substance: PREDNISONE
     Indication: Product used for unknown indication
     Route: 048

REACTIONS (3)
  - Sneezing [Not Recovered/Not Resolved]
  - Off label use [Unknown]
  - Nasal congestion [Not Recovered/Not Resolved]

NARRATIVE: CASE EVENT DATE: 20220108
